FAERS Safety Report 23252671 (Version 2)
Quarter: 2023Q4

REPORT INFORMATION
  Report Type: Spontaneous
  Country: US (occurrence: US)
  Receive Date: 20231201
  Receipt Date: 20231204
  Transmission Date: 20240110
  Serious: Yes (Other)
  Sender: FDA-Public Use
  Company Number: US-MYLANLABS-2023M1128011

PATIENT
  Age: 15 Year
  Sex: Male

DRUGS (13)
  1. CLOZAPINE [Interacting]
     Active Substance: CLOZAPINE
     Indication: Schizophrenia
     Dosage: 200 MILLIGRAM, AM (IN MORNING)
     Route: 065
  2. CLOZAPINE [Interacting]
     Active Substance: CLOZAPINE
     Dosage: 100 MILLIGRAM, IN THE AFTERNOON
     Route: 065
  3. CLOZAPINE [Interacting]
     Active Substance: CLOZAPINE
     Dosage: 250 MILLIGRAM, PM (IN THE EVENING)
     Route: 065
  4. CLOZAPINE [Interacting]
     Active Substance: CLOZAPINE
     Dosage: 100 MILLIGRAM, AM (IN MORNING)
     Route: 065
  5. CLOZAPINE [Interacting]
     Active Substance: CLOZAPINE
     Dosage: 200 MILLIGRAM, PM (IN THE EVENING)
     Route: 065
  6. CLOZAPINE [Interacting]
     Active Substance: CLOZAPINE
     Dosage: 50 MILLIGRAM, PM (IN THE EVENING)
     Route: 065
  7. CLOZAPINE [Interacting]
     Active Substance: CLOZAPINE
     Dosage: 50 MILLIGRAM, BID
     Route: 065
  8. CLOZAPINE [Interacting]
     Active Substance: CLOZAPINE
     Dosage: 100 MILLIGRAM, BID
     Route: 065
  9. FLUOXETINE [Interacting]
     Active Substance: FLUOXETINE HYDROCHLORIDE
     Indication: Schizophrenia
     Dosage: 40 MILLIGRAM, AM (IN THE MORNING)
     Route: 065
  10. FLUOXETINE [Interacting]
     Active Substance: FLUOXETINE HYDROCHLORIDE
     Dosage: 20 MILLIGRAM, PM (IN THE EVENING
     Route: 065
  11. FLUOXETINE [Interacting]
     Active Substance: FLUOXETINE HYDROCHLORIDE
     Dosage: 40 MILLIGRAM, QD
     Route: 065
  12. ZIPRASIDONE [Interacting]
     Active Substance: ZIPRASIDONE
     Indication: Schizophrenia
     Dosage: 40 MILLIGRAM, BID
     Route: 065
  13. ZIPRASIDONE [Interacting]
     Active Substance: ZIPRASIDONE
     Dosage: 20 MILLIGRAM, BID
     Route: 065

REACTIONS (3)
  - Drug interaction [Recovered/Resolved]
  - Malignant catatonia [Recovered/Resolved]
  - Delirium [Recovered/Resolved]
